FAERS Safety Report 12466935 (Version 4)
Quarter: 2016Q3

REPORT INFORMATION
  Report Type: Spontaneous
  Country: JP (occurrence: JP)
  Receive Date: 20160615
  Receipt Date: 20160708
  Transmission Date: 20161109
  Serious: Yes (Death, Life-Threatening, Hospitalization, Disabling)
  Sender: FDA-Public Use
  Company Number: JP-ELI_LILLY_AND_COMPANY-JP201606004065

PATIENT
  Age: 91 Year
  Sex: Female

DRUGS (10)
  1. ATORVASTATIN                       /01326102/ [Concomitant]
     Active Substance: ATORVASTATIN
     Indication: DYSLIPIDAEMIA
     Dosage: 5 MG, QD
     Route: 048
     Dates: end: 20160606
  2. FERROMIA [Concomitant]
     Active Substance: FERROUS CITRATE
     Dosage: 100 MG, QD
     Route: 048
     Dates: end: 20160606
  3. CYMBALTA [Suspect]
     Active Substance: DULOXETINE HYDROCHLORIDE
     Dosage: 20 MG, QD
     Route: 048
     Dates: start: 20160526, end: 20160606
  4. CLOPIDOGREL [Suspect]
     Active Substance: CLOPIDOGREL BISULFATE
     Indication: MYOCARDIAL INFARCTION
     Dosage: 75 MG, QD
     Route: 048
     Dates: end: 20160606
  5. LANSOPRAZOLE. [Concomitant]
     Active Substance: LANSOPRAZOLE
     Indication: MYOCARDIAL INFARCTION
     Dosage: 15 MG, QD
     Route: 048
     Dates: end: 20160606
  6. BAYASPIRIN [Suspect]
     Active Substance: ASPIRIN
     Indication: MYOCARDIAL INFARCTION
     Dosage: 100 MG, QD
     Route: 048
     Dates: end: 20160606
  7. MAGMITT [Concomitant]
     Active Substance: MAGNESIUM OXIDE
     Dosage: 660 MG, BID
     Route: 048
     Dates: start: 20160519, end: 20160606
  8. SENNOSIDE                          /00571901/ [Concomitant]
     Active Substance: SENNOSIDES A AND B
     Dosage: 24 MG, QD
     Route: 048
     Dates: end: 20160606
  9. CYMBALTA [Suspect]
     Active Substance: DULOXETINE HYDROCHLORIDE
     Indication: DEPRESSION
     Dosage: 10 MG, QD
     Route: 048
     Dates: start: 20160519, end: 20160525
  10. DAIKENCHUTO [Concomitant]
     Active Substance: HERBALS
     Dosage: 7.5 G, TID
     Route: 048
     Dates: start: 20160519, end: 20160606

REACTIONS (3)
  - Cerebral haemorrhage [Fatal]
  - Wrong technique in product usage process [Recovered/Resolved]
  - Ileus paralytic [Fatal]

NARRATIVE: CASE EVENT DATE: 20160519
